FAERS Safety Report 11034461 (Version 1)
Quarter: 2015Q2

REPORT INFORMATION
  Report Type: Report from Study
  Country: IT (occurrence: IT)
  Receive Date: 20150415
  Receipt Date: 20150415
  Transmission Date: 20150821
  Serious: Yes (Death, Other)
  Sender: FDA-Public Use
  Company Number: IT-ABBVIE-15P-083-1376189-00

PATIENT
  Age: 74 Year
  Sex: Female
  Weight: 50 kg

DRUGS (1)
  1. LEVODOPA/CARBIDOPA [Suspect]
     Active Substance: CARBIDOPA\LEVODOPA
     Indication: PARKINSON^S DISEASE
     Dosage: MD 2(+3)?CR 2.3 ML/H?ED 1.0
     Route: 050
     Dates: start: 20111202, end: 20150402

REACTIONS (1)
  - Cardiac arrest [Fatal]

NARRATIVE: CASE EVENT DATE: 20150402
